FAERS Safety Report 19101987 (Version 1)
Quarter: 2021Q2

REPORT INFORMATION
  Report Type: Spontaneous
  Country: GB (occurrence: GB)
  Receive Date: 20210407
  Receipt Date: 20210407
  Transmission Date: 20210717
  Serious: Yes (Other)
  Sender: FDA-Public Use
  Company Number: GB-MYLANLABS-2021M1020535

PATIENT
  Age: 72 Year
  Sex: Female
  Weight: 90 kg

DRUGS (12)
  1. HYDROMOL                           /01244401/ [Concomitant]
     Dosage: 1 DOSAGE FORM, BID
     Dates: start: 20210301, end: 20210304
  2. DOXAZOSIN [Suspect]
     Active Substance: DOXAZOSIN MESYLATE
     Indication: PRODUCT USED FOR UNKNOWN INDICATION
     Dosage: 2 MILLIGRAM
     Dates: start: 20210331
  3. METFORMIN [Concomitant]
     Active Substance: METFORMIN HYDROCHLORIDE
     Dosage: 1 DOSAGE FORM, QD
     Dates: start: 20201026
  4. DOXAZOSIN [Concomitant]
     Active Substance: DOXAZOSIN MESYLATE
     Dosage: 1 DOSAGE FORM, QD
     Dates: start: 20210129
  5. LERCANIDIPINE HYDROCHLORIDE [Concomitant]
     Active Substance: LERCANIDIPINE HYDROCHLORIDE
     Dosage: 1 DOSAGE FORM, QD
     Dates: start: 20201130, end: 20210129
  6. RAMIPRIL. [Concomitant]
     Active Substance: RAMIPRIL
     Dosage: 1 DOSAGE FORM, QD
     Dates: start: 20201026
  7. PARACETAMOL [Concomitant]
     Active Substance: ACETAMINOPHEN
     Dosage: 1?2 TABLET(S) FOUR TIMES A DAY WHEN REQUIRED
     Dates: start: 20201026
  8. FLUCLOXACILLIN [Concomitant]
     Active Substance: FLUCLOXACILLIN
     Dosage: 1 DOSAGE FORM, QID
     Dates: start: 20210303, end: 20210310
  9. SIMVASTATIN. [Concomitant]
     Active Substance: SIMVASTATIN
     Dosage: AT NIGHT
     Dates: start: 20201026
  10. CLOBETASOL PROPIONATE. [Concomitant]
     Active Substance: CLOBETASOL PROPIONATE
     Dosage: APPLY 2 TIMES/DAY FOR MAXIMUM OF ONE WEEK COURS
     Dates: start: 20210113, end: 20210127
  11. DERMOL                             /00337102/ [Concomitant]
     Active Substance: CLOBETASOL PROPIONATE
     Dosage: TO BE APPLIED TO THE SKIN OR USED AS A SOAP SUB
     Dates: start: 20210113, end: 20210210
  12. ESTRIOL [Concomitant]
     Active Substance: ESTRIOL
     Dosage: TWICE A WEEK
     Dates: start: 20201026

REACTIONS (1)
  - Rash vesicular [Recovering/Resolving]

NARRATIVE: CASE EVENT DATE: 20210331
